FAERS Safety Report 12662246 (Version 3)
Quarter: 2017Q4

REPORT INFORMATION
  Report Type: Report from Study
  Country: None (occurrence: US)
  Receive Date: 20160817
  Receipt Date: 20171108
  Transmission Date: 20180320
  Serious: Yes (Hospitalization, Other)
  Sender: FDA-Public Use
  Company Number: US-ABBVIE-16K-163-1698912-00

PATIENT
  Age: 52 Year
  Sex: Female

DRUGS (2)
  1. HUMIRA [Suspect]
     Active Substance: ADALIMUMAB
     Indication: ANKYLOSING SPONDYLITIS
     Route: 058
     Dates: start: 201412, end: 20160415
  2. HUMIRA [Suspect]
     Active Substance: ADALIMUMAB
     Route: 058
     Dates: start: 20160630

REACTIONS (8)
  - Intervertebral disc protrusion [Unknown]
  - Hip surgery [Unknown]
  - Post procedural infection [Unknown]
  - Cyst [Unknown]
  - Deep vein thrombosis [Unknown]
  - Neuralgia [Unknown]
  - Intervertebral disc displacement [Unknown]
  - Spinal osteoarthritis [Unknown]

NARRATIVE: CASE EVENT DATE: 20161202
